FAERS Safety Report 8152619-2 (Version None)
Quarter: 2012Q1

REPORT INFORMATION
  Report Type: 
  Country: None (occurrence: None)
  Receive Date: 20120221
  Receipt Date: 20120213
  Transmission Date: 20120608
  Serious: Yes (Other)
  Sender: FDA-Public Use
  Company Number: IT-JNJFOC-20120206666

PATIENT
  Age: 69 Year
  Sex: Female

DRUGS (2)
  1. DIAZEPAM [Suspect]
     Indication: SELF INJURIOUS BEHAVIOUR
     Route: 048
     Dates: start: 20120213
  2. HALDOL [Suspect]
     Indication: SELF INJURIOUS BEHAVIOUR
     Route: 048
     Dates: start: 20120213

REACTIONS (3)
  - INTENTIONAL OVERDOSE [None]
  - SLUGGISHNESS [None]
  - BRADYCARDIA [None]
